FAERS Safety Report 25808797 (Version 1)
Quarter: 2025Q3

REPORT INFORMATION
  Report Type: Spontaneous
  Country: IN (occurrence: IN)
  Receive Date: 20250916
  Receipt Date: 20250916
  Transmission Date: 20251021
  Serious: Yes (Death, Hospitalization)
  Sender: MYLAN
  Company Number: IN-MYLANLABS-2025M1078535

PATIENT
  Age: 55 Year
  Sex: Female

DRUGS (8)
  1. IMATINIB [Suspect]
     Active Substance: IMATINIB
     Indication: Pulmonary tumour thrombotic microangiopathy
  2. IMATINIB [Suspect]
     Active Substance: IMATINIB
     Route: 065
  3. IMATINIB [Suspect]
     Active Substance: IMATINIB
     Route: 065
  4. IMATINIB [Suspect]
     Active Substance: IMATINIB
  5. RIOCIGUAT [Suspect]
     Active Substance: RIOCIGUAT
     Indication: Chronic obstructive pulmonary disease
  6. RIOCIGUAT [Suspect]
     Active Substance: RIOCIGUAT
     Route: 065
  7. RIOCIGUAT [Suspect]
     Active Substance: RIOCIGUAT
     Route: 065
  8. RIOCIGUAT [Suspect]
     Active Substance: RIOCIGUAT

REACTIONS (2)
  - Drug ineffective for unapproved indication [Fatal]
  - Off label use [Unknown]
